FAERS Safety Report 10725306 (Version 1)
Quarter: 2015Q1

REPORT INFORMATION
  Report Type: Spontaneous
  Country: US (occurrence: US)
  Receive Date: 20150120
  Receipt Date: 20150120
  Transmission Date: 20150721
  Serious: No
  Sender: FDA-Public Use
  Company Number: US-BRISTOL-MYERS SQUIBB COMPANY-BMS-2015-002765

PATIENT
  Age: 52 Year
  Sex: Female

DRUGS (4)
  1. IBUPROFEN. [Concomitant]
     Active Substance: IBUPROFEN
     Route: 048
  2. METFORMIN [Concomitant]
     Active Substance: METFORMIN HYDROCHLORIDE
     Dosage: 2000 MG, QD
     Route: 048
  3. FARXIGA [Suspect]
     Active Substance: DAPAGLIFLOZIN PROPANEDIOL
     Indication: DIABETES MELLITUS
     Dosage: 10 MG, UNK
     Route: 048
     Dates: start: 201407
  4. FUROSEMIDE. [Concomitant]
     Active Substance: FUROSEMIDE
     Route: 048

REACTIONS (2)
  - Blood creatinine increased [Unknown]
  - Blood urea increased [Unknown]

NARRATIVE: CASE EVENT DATE: 20140710
